FAERS Safety Report 5893187-5 (Version None)
Quarter: 2008Q3

REPORT INFORMATION
  Report Type: 
  Country: None (occurrence: None)
  Receive Date: 20080923
  Receipt Date: 20070726
  Transmission Date: 20090109
  Serious: No
  Sender: FDA-Public Use
  Company Number: US-ASTRAZENECA-2007UW18157

PATIENT
  Sex: Male

DRUGS (1)
  1. SEROQUEL [Suspect]
     Route: 048
     Dates: start: 20050701, end: 20070701

REACTIONS (5)
  - AGITATION [None]
  - FATIGUE [None]
  - HOT FLUSH [None]
  - RESTLESSNESS [None]
  - WITHDRAWAL SYNDROME [None]
